FAERS Safety Report 4639602-6 (Version None)
Quarter: 2005Q2

REPORT INFORMATION
  Report Type: 
  Country: None (occurrence: None)
  Receive Date: 20050328
  Receipt Date: 20050208
  Transmission Date: 20051028
  Serious: No
  Sender: FDA-Public Use
  Company Number: USA050290399

PATIENT
  Age: 8 Year
  Sex: Male

DRUGS (1)
  1. STRATTERA [Suspect]
     Dosage: 60 MG/D
     Dates: start: 20031121, end: 20050204

REACTIONS (4)
  - ABDOMINAL PAIN [None]
  - CRYING [None]
  - MUSCLE SPASMS [None]
  - URINARY RETENTION [None]
